FAERS Safety Report 10510301 (Version 1)
Quarter: 2014Q4

REPORT INFORMATION
  Report Type: Spontaneous
  Country: US (occurrence: None)
  Receive Date: 20141009
  Receipt Date: 20141009
  Transmission Date: 20150528
  Serious: No
  Sender: FDA-Public Use
  Company Number: None

PATIENT
  Age: 63 Year
  Sex: Female
  Weight: 54.43 kg

DRUGS (1)
  1. CLINDAMYCIN HCL [Suspect]
     Active Substance: CLINDAMYCIN HYDROCHLORIDE
     Indication: INFECTION
     Dosage: 1 CAPSULE FOUR TIMES DAILY TAKEN BY MOUTH
     Route: 048

REACTIONS (2)
  - Dyspepsia [None]
  - Insomnia [None]

NARRATIVE: CASE EVENT DATE: 20140922
